FAERS Safety Report 20734758 (Version 1)
Quarter: 2022Q2

REPORT INFORMATION
  Report Type: Spontaneous
  Country: AE (occurrence: AE)
  Receive Date: 20220421
  Receipt Date: 20220421
  Transmission Date: 20220721
  Serious: Yes (Life-Threatening, Hospitalization, Other)
  Sender: FDA-Public Use
  Company Number: AE-PRA-001194

PATIENT
  Age: 14 Year
  Sex: Female

DRUGS (4)
  1. METHYLPREDNISOLONE [Suspect]
     Active Substance: METHYLPREDNISOLONE
     Indication: Demyelinating polyneuropathy
     Route: 042
  2. HUMAN IMMUNOGLOBULIN G [Suspect]
     Active Substance: HUMAN IMMUNOGLOBULIN G
     Indication: Demyelinating polyneuropathy
     Route: 042
  3. RITUXIMAB [Suspect]
     Active Substance: RITUXIMAB
     Indication: Demyelinating polyneuropathy
     Dosage: 375 MG/M2/DOSE
     Route: 065
  4. METHYLPREDNISOLONE [Suspect]
     Active Substance: METHYLPREDNISOLONE
     Indication: Demyelinating polyneuropathy
     Route: 065

REACTIONS (7)
  - Pneumonia bacterial [Unknown]
  - Demyelinating polyneuropathy [Recovered/Resolved]
  - Disease progression [Recovered/Resolved]
  - Hypoventilation [Recovered/Resolved]
  - Delirium [Unknown]
  - Product use in unapproved indication [Unknown]
  - Drug ineffective [Unknown]
